FAERS Safety Report 14953776 (Version 1)
Quarter: 2018Q2

REPORT INFORMATION
  Report Type: Spontaneous
  Country: US (occurrence: US)
  Receive Date: 20180509
  Receipt Date: 20180509
  Transmission Date: 20180711
  Serious: No
  Sender: FDA-Public Use
  Company Number: None

PATIENT
  Age: 70 Year
  Sex: Male
  Weight: 89.81 kg

DRUGS (11)
  1. LOPID [Suspect]
     Active Substance: GEMFIBROZIL
  2. PRAVASTATIN. [Suspect]
     Active Substance: PRAVASTATIN
  3. SIMVASTATIN 10MG [Suspect]
     Active Substance: SIMVASTATIN
     Indication: BLOOD CHOLESTEROL
     Dosage: ?          QUANTITY:10 MG MILLIGRAM(S);?
     Route: 048
  4. PITAVASTATIN. [Suspect]
     Active Substance: PITAVASTATIN CALCIUM
  5. TRICOR [Suspect]
     Active Substance: FENOFIBRATE
  6. CODEINE [Suspect]
     Active Substance: CODEINE
  7. GLYBURIDE. [Suspect]
     Active Substance: GLYBURIDE
  8. LIPITOR [Suspect]
     Active Substance: ATORVASTATIN CALCIUM
  9. PREDNISONE. [Suspect]
     Active Substance: PREDNISONE
  10. CRESTOR [Suspect]
     Active Substance: ROSUVASTATIN CALCIUM
  11. TRIGLIDE [Suspect]
     Active Substance: FENOFIBRATE

REACTIONS (3)
  - Tremor [None]
  - Muscle spasms [None]
  - Pain [None]
